FAERS Safety Report 5382478-2 (Version None)
Quarter: 2007Q3

REPORT INFORMATION
  Report Type: 
  Country: None (occurrence: None)
  Receive Date: 20070703
  Receipt Date: 20060711
  Transmission Date: 20080115
  Serious: Yes (Other)
  Sender: FDA-Public Use
  Company Number: US-JNJFOC-20060702482

PATIENT
  Age: 12 Year
  Sex: Male
  Weight: 35.3806 kg

DRUGS (1)
  1. MOTRIN IB [Suspect]
     Indication: ARTHRALGIA
     Dosage: 200 MG, 2 IN 1 DAY
     Dates: start: 20060201

REACTIONS (2)
  - GASTROINTESTINAL INFLAMMATION [None]
  - INTESTINAL HAEMORRHAGE [None]
